FAERS Safety Report 16268756 (Version 1)
Quarter: 2019Q2

REPORT INFORMATION
  Report Type: Spontaneous
  Country: GB (occurrence: GB)
  Receive Date: 20190503
  Receipt Date: 20190503
  Transmission Date: 20190711
  Serious: Yes (Hospitalization)
  Sender: FDA-Public Use
  Company Number: GB-TEVA-2019-GB-1044216

PATIENT
  Age: 72 Year
  Sex: Female

DRUGS (7)
  1. PHENYTOIN SODIUM. [Suspect]
     Active Substance: PHENYTOIN SODIUM
     Dosage: 300 MILLIGRAM DAILY;
     Route: 048
  2. PARACETAMOL [Concomitant]
     Active Substance: ACETAMINOPHEN
     Dosage: 1-2
     Route: 048
  3. CASSIA (SENNA ALEXANDRINA) [Concomitant]
     Active Substance: HERBALS\SENNOSIDES
     Dosage: AT NIGHT.
     Route: 048
  4. CODEINE [Concomitant]
     Active Substance: CODEINE
     Dosage: 1-2
     Route: 048
  5. PHENOBARBITAL. [Suspect]
     Active Substance: PHENOBARBITAL
     Dosage: 90 MILLIGRAM DAILY;
  6. MACROGOL [Concomitant]
     Active Substance: POLYETHYLENE GLYCOLS
     Route: 048
  7. ADCAL-D3 [Concomitant]
     Active Substance: CALCIUM CARBONATE\CHOLECALCIFEROL
     Dosage: 4 DOSAGE FORMS DAILY; 750MG/200UNIT
     Route: 048

REACTIONS (1)
  - Fracture pain [Recovering/Resolving]

NARRATIVE: CASE EVENT DATE: 20180401
